FAERS Safety Report 24300619 (Version 1)
Quarter: 2024Q3

REPORT INFORMATION
  Report Type: Spontaneous
  Country: US (occurrence: US)
  Receive Date: 20240910
  Receipt Date: 20240910
  Transmission Date: 20241017
  Serious: Yes (Hospitalization, Other)
  Sender: BRISTOL MYERS SQUIBB
  Company Number: US-BRISTOL-MYERS SQUIBB COMPANY-2024-137784

PATIENT
  Age: 29 Year
  Sex: Male
  Weight: 66.68 kg

DRUGS (1)
  1. ZEPOSIA [Suspect]
     Active Substance: OZANIMOD HYDROCHLORIDE
     Indication: Multiple sclerosis
     Dosage: DOSE : .92MG;     FREQ : ONCE A DAY, AT NIGHT
     Route: 048
     Dates: start: 2022

REACTIONS (4)
  - Loss of libido [Unknown]
  - Memory impairment [Unknown]
  - Lethargy [Unknown]
  - Bladder disorder [Recovering/Resolving]
